FAERS Safety Report 21361426 (Version 1)
Quarter: 2022Q3

REPORT INFORMATION
  Report Type: Spontaneous
  Country: US (occurrence: US)
  Receive Date: 20220921
  Receipt Date: 20220921
  Transmission Date: 20221026
  Serious: Yes (Death, Hospitalization)
  Sender: FDA-Public Use
  Company Number: US-TEVA-2022-US-2074040

PATIENT
  Age: 47 Year
  Sex: Female

DRUGS (5)
  1. FOLIC ACID [Suspect]
     Active Substance: FOLIC ACID
     Indication: Alcohol poisoning
     Route: 065
     Dates: start: 2020
  2. FOMEPIZOLE [Suspect]
     Active Substance: FOMEPIZOLE
     Indication: Alcohol poisoning
     Route: 065
     Dates: start: 2020
  3. PYRIDOXINE [Suspect]
     Active Substance: PYRIDOXINE
     Indication: Alcohol poisoning
     Route: 065
     Dates: start: 2020
  4. SODIUM BICARBONATE [Suspect]
     Active Substance: SODIUM BICARBONATE
     Indication: Alcohol poisoning
     Route: 065
     Dates: start: 2020
  5. THIAMINE [Suspect]
     Active Substance: THIAMINE
     Indication: Alcohol poisoning
     Route: 065
     Dates: start: 2020

REACTIONS (1)
  - Drug ineffective [Fatal]

NARRATIVE: CASE EVENT DATE: 20200101
